FAERS Safety Report 9298667 (Version 3)
Quarter: 2013Q3

REPORT INFORMATION
  Report Type: Spontaneous
  Country: US (occurrence: US)
  Receive Date: 20130517
  Receipt Date: 20130802
  Transmission Date: 20140515
  Serious: Yes (Hospitalization)
  Sender: FDA-Public Use
  Company Number: US-BRACCO-009441

PATIENT
  Age: 44 Year
  Sex: Female

DRUGS (2)
  1. MULTIHANCE [Suspect]
     Indication: NUCLEAR MAGNETIC RESONANCE IMAGING
     Dates: start: 20130410, end: 20130410
  2. ALLEGRA [Concomitant]
     Dates: start: 200901

REACTIONS (1)
  - Autoimmune haemolytic anaemia [Recovered/Resolved]
